FAERS Safety Report 5218967-0 (Version None)
Quarter: 2007Q1

REPORT INFORMATION
  Report Type: 
  Country: None (occurrence: None)
  Receive Date: 20070122
  Receipt Date: 20070108
  Transmission Date: 20070707
  Serious: Yes (Hospitalization)
  Sender: FDA-Public Use
  Company Number: 2007-00034

PATIENT
  Age: 68 Year
  Sex: Male
  Weight: 79 kg

DRUGS (3)
  1. VELCADE [Suspect]
     Indication: MULTIPLE MYELOMA
     Dosage: SEE IMAGE
     Route: 042
     Dates: start: 20060925
  2. REVLIMID [Suspect]
     Indication: MULTIPLE MYELOMA
     Dosage: 15.00 MG, ORAL
     Route: 048
     Dates: start: 20060925
  3. DEXAMETHASONE [Suspect]
     Indication: MULTIPLE MYELOMA
     Dosage: SEE IMAGE
     Dates: start: 20061106

REACTIONS (2)
  - ALCOHOL USE [None]
  - ATRIAL FIBRILLATION [None]
